FAERS Safety Report 5481369-6 (Version None)
Quarter: 2007Q4

REPORT INFORMATION
  Report Type: 
  Country: None (occurrence: None)
  Receive Date: 20071010
  Receipt Date: 20071004
  Transmission Date: 20080405
  Serious: Yes (Other)
  Sender: FDA-Public Use
  Company Number: AU-AVENTIS-200719203GDDC

PATIENT
  Age: 72 Year
  Sex: Female

DRUGS (8)
  1. ARAVA [Suspect]
     Indication: RHEUMATOID ARTHRITIS
     Route: 048
     Dates: start: 20070715, end: 20070726
  2. AMIZIDE [Concomitant]
     Dosage: DOSE: UNK
  3. CALCIFORT [Concomitant]
     Dosage: DOSE: UNK
  4. ETIDRONATE DISODIUM [Concomitant]
     Dosage: DOSE: UNK
  5. LOSEC                              /00661201/ [Concomitant]
     Dosage: DOSE: UNK
  6. ESTROGENIC SUBSTANCE [Concomitant]
     Dosage: DOSE: UNK
  7. LEVOTHYROXINE SODIUM [Concomitant]
     Dosage: DOSE: UNK
  8. ACE INHIBITOR NOS [Concomitant]
     Dosage: DOSE: UNK

REACTIONS (6)
  - ANOREXIA [None]
  - DIARRHOEA [None]
  - DIZZINESS [None]
  - FALL [None]
  - NAUSEA [None]
  - RECTAL HAEMORRHAGE [None]
